FAERS Safety Report 6473108-7 (Version None)
Quarter: 2009Q4

REPORT INFORMATION
  Report Type: 
  Country: None (occurrence: None)
  Receive Date: 20091204
  Receipt Date: 20090513
  Transmission Date: 20100525
  Serious: Yes (Hospitalization)
  Sender: FDA-Public Use
  Company Number: IT-ELI_LILLY_AND_COMPANY-IT200807000901

PATIENT
  Sex: Female

DRUGS (4)
  1. BYETTA [Suspect]
     Indication: TYPE 2 DIABETES MELLITUS
     Dosage: 10 UG, DAILY (1/D)
     Route: 058
     Dates: start: 20080530, end: 20080602
  2. ATENOLOL [Concomitant]
     Dosage: 50 MG, UNK
     Route: 048
     Dates: start: 20030101
  3. KARVEZIDE [Concomitant]
     Dosage: 1 D/F, UNK(KARVEZIDE 300MG/12.5MG)
     Route: 048
     Dates: start: 20030101
  4. GLICONORM [Concomitant]
     Dosage: 2 D/F, UNK (GLICONORM 5MG+ 500MG)
     Route: 048
     Dates: start: 20030101

REACTIONS (1)
  - ATRIAL FIBRILLATION [None]
